FAERS Safety Report 8300178-3 (Version None)
Quarter: 2012Q1

REPORT INFORMATION
  Report Type: 
  Country: None (occurrence: None)
  Receive Date: 20120323
  Receipt Date: 20100104
  Transmission Date: 20120608
  Serious: Yes (Other)
  Sender: FDA-Public Use
  Company Number: PHHY2010US00678

PATIENT
  Age: 71 Year
  Sex: Male

DRUGS (1)
  1. TOBI [Suspect]
     Indication: CYSTIC FIBROSIS
     Dosage: TWICE DAILY FOR  4 WEEKS AND THEN 4 WEEKS OFF, INHALATION
     Route: 055
     Dates: start: 20080121, end: 20091112

REACTIONS (1)
  - DEAFNESS [None]
